FAERS Safety Report 5364707-4 (Version None)
Quarter: 2007Q2

REPORT INFORMATION
  Report Type: 
  Country: None (occurrence: None)
  Receive Date: 20070530
  Receipt Date: 20070104
  Transmission Date: 20071010
  Serious: No
  Sender: FDA-Public Use
  Company Number: 2006PV007444

PATIENT
  Age: 72 Year
  Sex: Male
  Weight: 72.5755 kg

DRUGS (14)
  1. BYETTA [Suspect]
     Indication: DIABETES MELLITUS NON-INSULIN-DEPENDENT
     Dosage: 10 MCG; QAM; SC; 10 MCG; BID; SC; 5 MCG; BID; SC; 5 MCG; SC
     Route: 058
     Dates: start: 20060101, end: 20060101
  2. BYETTA [Suspect]
     Indication: DIABETES MELLITUS NON-INSULIN-DEPENDENT
     Dosage: 10 MCG; QAM; SC; 10 MCG; BID; SC; 5 MCG; BID; SC; 5 MCG; SC
     Route: 058
     Dates: start: 20060101, end: 20060101
  3. BYETTA [Suspect]
     Indication: DIABETES MELLITUS NON-INSULIN-DEPENDENT
     Dosage: 10 MCG; QAM; SC; 10 MCG; BID; SC; 5 MCG; BID; SC; 5 MCG; SC
     Route: 058
     Dates: start: 20060209, end: 20060101
  4. BYETTA [Suspect]
     Indication: DIABETES MELLITUS NON-INSULIN-DEPENDENT
     Dosage: 10 MCG; QAM; SC; 10 MCG; BID; SC; 5 MCG; BID; SC; 5 MCG; SC
     Route: 058
     Dates: start: 20051201
  5. BYETTA [Suspect]
     Indication: DIABETES MELLITUS NON-INSULIN-DEPENDENT
     Dosage: 10 MCG; QAM; SC; 10 MCG; BID; SC; 5 MCG; BID; SC; 5 MCG; SC
     Route: 058
     Dates: start: 20051201
  6. BYETTA [Suspect]
  7. LIPITOR [Suspect]
     Indication: DRUG USE FOR UNKNOWN INDICATION
     Dosage: 10 MG; QD
     Dates: start: 20060209
  8. METFORMIN HCL [Concomitant]
  9. METAMUCIL [Concomitant]
  10. STOOL SOFTENER [Concomitant]
  11. ENEMAS [Concomitant]
  12. COZAAR [Concomitant]
  13. ............................ [Concomitant]
  14. GLYCOLAX [Concomitant]

REACTIONS (9)
  - CHILLS [None]
  - CONSTIPATION [None]
  - DECREASED APPETITE [None]
  - DIARRHOEA [None]
  - DYSGEUSIA [None]
  - FAECES HARD [None]
  - FEELING ABNORMAL [None]
  - NAUSEA [None]
  - WEIGHT DECREASED [None]
